FAERS Safety Report 18857799 (Version 3)
Quarter: 2022Q1

REPORT INFORMATION
  Report Type: Spontaneous
  Country: US (occurrence: US)
  Receive Date: 20210208
  Receipt Date: 20220210
  Transmission Date: 20220424
  Serious: Yes (Other)
  Sender: FDA-Public Use
  Company Number: US-SA-SAC20210205000625

PATIENT
  Age: 48 Year
  Sex: Female

DRUGS (9)
  1. AUBAGIO [Suspect]
     Active Substance: TERIFLUNOMIDE
     Indication: Multiple sclerosis
     Dosage: 14 MG, QD
     Route: 048
     Dates: start: 20201211
  2. AUBAGIO [Suspect]
     Active Substance: TERIFLUNOMIDE
     Dosage: 14 MG, QD
     Route: 048
     Dates: start: 20201229, end: 202101
  3. AUBAGIO [Suspect]
     Active Substance: TERIFLUNOMIDE
     Dosage: 14 MG, QD
     Route: 048
     Dates: start: 2021, end: 2021
  4. IBUPROFEN [Concomitant]
     Active Substance: IBUPROFEN
  5. VITAMINS [Concomitant]
     Active Substance: VITAMINS
  6. VITAMIN D3 [Concomitant]
     Active Substance: CHOLECALCIFEROL
  7. VITAMIN C [Concomitant]
     Active Substance: ASCORBIC ACID
  8. LEVOTHYROXINE [Concomitant]
     Active Substance: LEVOTHYROXINE
  9. BACTRIM [Concomitant]
     Active Substance: SULFAMETHOXAZOLE\TRIMETHOPRIM

REACTIONS (17)
  - Renal pain [Not Recovered/Not Resolved]
  - Pain [Unknown]
  - Peripheral swelling [Recovering/Resolving]
  - Vomiting [Unknown]
  - Urinary tract infection [Unknown]
  - COVID-19 [Recovered/Resolved]
  - Nausea [Unknown]
  - Alopecia [Unknown]
  - Migraine [Unknown]
  - Sinusitis [Recovered/Resolved]
  - Burning sensation [Unknown]
  - Urinary tract infection [Unknown]
  - Pain [Unknown]
  - Pollakiuria [Unknown]
  - Gait disturbance [Unknown]
  - Multiple sclerosis [Unknown]
  - Impaired work ability [Unknown]

NARRATIVE: CASE EVENT DATE: 20210101
